FAERS Safety Report 8609927-8 (Version None)
Quarter: 2012Q3

REPORT INFORMATION
  Report Type: 
  Country: None (occurrence: None)
  Receive Date: 20120821
  Receipt Date: 20120813
  Transmission Date: 20120928
  Serious: Yes (Other)
  Sender: FDA-Public Use
  Company Number: CHPA2012DE017968

PATIENT
  Age: 39 Year
  Sex: Female
  Weight: 134 kg

DRUGS (4)
  1. CETIRIZINE [Suspect]
     Indication: SEASONAL ALLERGY
     Dosage: 10 MG/D
     Route: 048
     Dates: start: 20110308, end: 20110428
  2. DIPHTHERIA AND TETANUS VACCINE [Concomitant]
     Indication: IMMUNISATION
     Dosage: 1 DF, ONCE/SINGLE
     Route: 030
     Dates: start: 20110421, end: 20110421
  3. OTRIVIN [Suspect]
     Indication: RHINITIS
     Dosage: UNK, UNK
     Route: 045
     Dates: start: 20110308, end: 20111214
  4. FEMIBION [Concomitant]
     Indication: PROPHYLAXIS OF NEURAL TUBE DEFECT
     Dosage: 0.4 MG/D
     Route: 048

REACTIONS (2)
  - MATERNAL EXPOSURE DURING PREGNANCY [None]
  - GESTATIONAL DIABETES [None]
